FAERS Safety Report 16397802 (Version 1)
Quarter: 2019Q2

REPORT INFORMATION
  Report Type: Spontaneous
  Country: US (occurrence: US)
  Receive Date: 20190430
  Receipt Date: 20190430
  Transmission Date: 20190711
  Serious: Yes (Hospitalization)
  Sender: FDA-Public Use
  Company Number: None

PATIENT
  Age: 48 Year
  Sex: Male
  Weight: 98.4 kg

DRUGS (4)
  1. CYCLOPHOSPHAMIDE. [Suspect]
     Active Substance: CYCLOPHOSPHAMIDE
     Dates: end: 20190402
  2. CYTARABINE. [Suspect]
     Active Substance: CYTARABINE
     Dates: end: 20190411
  3. METHOTREXATE. [Suspect]
     Active Substance: METHOTREXATE
     Dates: end: 20190325
  4. MERCAPTOPURINE. [Suspect]
     Active Substance: MERCAPTOPURINE
     Dates: end: 20190415

REACTIONS (6)
  - Chills [None]
  - Hyperhidrosis [None]
  - Productive cough [None]
  - Bronchial wall thickening [None]
  - Blood lactic acid increased [None]
  - Pyrexia [None]

NARRATIVE: CASE EVENT DATE: 20190426
